FAERS Safety Report 7619680-2 (Version None)
Quarter: 2011Q3

REPORT INFORMATION
  Report Type: 
  Country: None (occurrence: None)
  Receive Date: 20110719
  Receipt Date: 20110710
  Transmission Date: 20111222
  Serious: Yes (Hospitalization, Other)
  Sender: FDA-Public Use
  Company Number: US-BAYER-2010-004402

PATIENT
  Age: 16 Year
  Sex: Female
  Weight: 61.224 kg

DRUGS (15)
  1. YAZ [Suspect]
     Indication: PREMENSTRUAL SYNDROME
  2. HYDROXYZINE HCL [Concomitant]
     Dosage: UNK
     Dates: start: 20080601, end: 20090601
  3. FLUOCINONIDE [Concomitant]
     Dosage: UNK
     Dates: start: 20080801, end: 20081001
  4. PREVACID [Concomitant]
     Dosage: UNK
     Dates: start: 20080301, end: 20080801
  5. NEXIUM [Concomitant]
  6. XOPENEX [Concomitant]
     Dosage: UNK
     Dates: start: 20081001
  7. CYPROHEPTADINE HCL [Concomitant]
     Dosage: UNK
     Dates: start: 20080501, end: 20080701
  8. TYLENOL-500 [Concomitant]
  9. SYMBICORT [Concomitant]
     Dosage: UNK
     Dates: start: 20071101, end: 20090101
  10. CEFPROZIL [Concomitant]
     Dosage: UNK
     Dates: start: 20081001
  11. PSEUDOEPHEDRINE-CHLORPHENIRAMINE [Concomitant]
     Dosage: UNK
     Dates: start: 20081001
  12. PHENERGAN HCL [Concomitant]
  13. CELEXA [Concomitant]
  14. YAZ [Suspect]
     Indication: CONTRACEPTION
     Dosage: UNK
     Route: 048
     Dates: start: 20070401, end: 20090601
  15. MIRALAX [Concomitant]

REACTIONS (7)
  - MENTAL DISORDER [None]
  - PAIN [None]
  - BILIARY DYSKINESIA [None]
  - ANXIETY [None]
  - GALLBLADDER INJURY [None]
  - ABDOMINAL PAIN [None]
  - DEPRESSION [None]
